FAERS Safety Report 23522312 (Version 1)
Quarter: 2024Q1

REPORT INFORMATION
  Report Type: Spontaneous
  Country: US (occurrence: US)
  Receive Date: 20240214
  Receipt Date: 20240214
  Transmission Date: 20240410
  Serious: No
  Sender: FDA-Public Use
  Company Number: US-BEH-2024168092

PATIENT
  Sex: Female

DRUGS (4)
  1. HIZENTRA [Suspect]
     Active Substance: HUMAN IMMUNOGLOBULIN G
     Indication: Selective IgG subclass deficiency
     Dosage: 10 GRAM, QW
     Route: 058
     Dates: start: 202401
  2. TOBRAMYCIN [Concomitant]
     Active Substance: TOBRAMYCIN
  3. EPINEPHRINE [Concomitant]
     Active Substance: EPINEPHRINE
  4. FASENRA [Concomitant]
     Active Substance: BENRALIZUMAB

REACTIONS (4)
  - Decreased appetite [Unknown]
  - Pruritus [Unknown]
  - Headache [Unknown]
  - Swelling [Unknown]
